FAERS Safety Report 11593628 (Version 4)
Quarter: 2015Q4

REPORT INFORMATION
  Report Type: Spontaneous
  Country: US (occurrence: US)
  Receive Date: 20151005
  Receipt Date: 20151028
  Transmission Date: 20160304
  Serious: Yes (Hospitalization)
  Sender: FDA-Public Use
  Company Number: US-JNJFOC-20150927467

PATIENT
  Age: 72 Year
  Sex: Female

DRUGS (5)
  1. IMBRUVICA [Suspect]
     Active Substance: IBRUTINIB
     Indication: COLD TYPE HAEMOLYTIC ANAEMIA
     Route: 048
     Dates: start: 20150312, end: 201510
  2. IMBRUVICA [Suspect]
     Active Substance: IBRUTINIB
     Indication: WALDENSTROM^S MACROGLOBULINAEMIA
     Route: 048
     Dates: start: 201510
  3. FOLIC ACID. [Concomitant]
     Active Substance: FOLIC ACID
  4. IMBRUVICA [Suspect]
     Active Substance: IBRUTINIB
     Indication: COLD TYPE HAEMOLYTIC ANAEMIA
     Route: 048
     Dates: start: 201510
  5. IMBRUVICA [Suspect]
     Active Substance: IBRUTINIB
     Indication: WALDENSTROM^S MACROGLOBULINAEMIA
     Route: 048
     Dates: start: 20150312, end: 201510

REACTIONS (3)
  - Haemoglobin decreased [Unknown]
  - Tumour lysis syndrome [Unknown]
  - Cold type haemolytic anaemia [Unknown]

NARRATIVE: CASE EVENT DATE: 20150924
